FAERS Safety Report 9140958 (Version 2)
Quarter: 2013Q2

REPORT INFORMATION
  Report Type: Spontaneous
  Country: US (occurrence: US)
  Receive Date: 20130305
  Receipt Date: 20130502
  Transmission Date: 20140414
  Serious: Yes (Other)
  Sender: FDA-Public Use
  Company Number: US-TEVA-389547USA

PATIENT
  Age: 17 Year
  Sex: Female

DRUGS (1)
  1. CLARAVIS [Suspect]

REACTIONS (5)
  - Self-injurious ideation [Unknown]
  - Self esteem decreased [Unknown]
  - Depression [Unknown]
  - Disturbance in attention [Unknown]
  - Dry skin [Recovered/Resolved]
